FAERS Safety Report 14799509 (Version 1)
Quarter: 2018Q2

REPORT INFORMATION
  Report Type: Spontaneous
  Country: US (occurrence: US)
  Receive Date: 20180424
  Receipt Date: 20180424
  Transmission Date: 20180711
  Serious: Yes (Life-Threatening, Hospitalization)
  Sender: FDA-Public Use
  Company Number: US-JNJFOC-20180429684

PATIENT
  Age: 45 Year
  Sex: Female

DRUGS (2)
  1. METFORMIN [Concomitant]
     Active Substance: METFORMIN HYDROCHLORIDE
     Indication: PRODUCT USED FOR UNKNOWN INDICATION
     Route: 048
     Dates: end: 201502
  2. INVOKANA [Suspect]
     Active Substance: CANAGLIFLOZIN
     Indication: TYPE 2 DIABETES MELLITUS
     Route: 048
     Dates: start: 20150119, end: 201502

REACTIONS (4)
  - Metabolic encephalopathy [Recovering/Resolving]
  - Respiratory failure [Recovering/Resolving]
  - Diabetic ketoacidosis [Recovering/Resolving]
  - Acute kidney injury [Recovered/Resolved]

NARRATIVE: CASE EVENT DATE: 201501
